FAERS Safety Report 5749947-4 (Version None)
Quarter: 2008Q2

REPORT INFORMATION
  Report Type: 
  Country: None (occurrence: None)
  Receive Date: 20080527
  Receipt Date: 20080521
  Transmission Date: 20081010
  Serious: Yes (Life-Threatening, Hospitalization)
  Sender: FDA-Public Use
  Company Number: DE-WYE-H02894908

PATIENT

DRUGS (7)
  1. CELLCEPT [Suspect]
     Indication: PROPHYLAXIS AGAINST TRANSPLANT REJECTION
     Route: 048
     Dates: start: 20071101, end: 20080106
  2. RAMIPRIL [Concomitant]
  3. PANTOPRAZOLE SODIUM [Concomitant]
  4. FUROSEMIDE [Concomitant]
  5. CYCLOSPORINE [Suspect]
     Indication: PROPHYLAXIS AGAINST TRANSPLANT REJECTION
     Route: 048
     Dates: start: 20071101, end: 20080106
  6. RAPAMUNE [Suspect]
     Indication: PROPHYLAXIS AGAINST TRANSPLANT REJECTION
     Dates: start: 20080104, end: 20080106
  7. RAPAMUNE [Suspect]
     Dates: start: 20080110

REACTIONS (2)
  - PULMONARY OEDEMA [None]
  - RENAL FAILURE ACUTE [None]
